FAERS Safety Report 17079809 (Version 1)
Quarter: 2019Q4

REPORT INFORMATION
  Report Type: Report from Study
  Country: None (occurrence: US)
  Receive Date: 20191127
  Receipt Date: 20191127
  Transmission Date: 20200122
  Serious: Yes (Other)
  Sender: FDA-Public Use
  Company Number: US-ABBVIE-19K-163-3012386-00

PATIENT
  Age: 61 Year
  Sex: Female

DRUGS (1)
  1. HUMIRA [Suspect]
     Active Substance: ADALIMUMAB
     Indication: RHEUMATOID ARTHRITIS
     Dosage: CITRATE-FREE
     Route: 058

REACTIONS (3)
  - Loss of consciousness [Unknown]
  - Syncope [Unknown]
  - Cholecystectomy [Recovering/Resolving]

NARRATIVE: CASE EVENT DATE: 20191118
